FAERS Safety Report 4577015-6 (Version None)
Quarter: 2005Q1

REPORT INFORMATION
  Report Type: 
  Country: None (occurrence: None)
  Receive Date: 20050208
  Receipt Date: 20050125
  Transmission Date: 20050727
  Serious: Yes (Congenital Anomaly)
  Sender: FDA-Public Use
  Company Number: S04-USA-06889-02

PATIENT
  Age: 0 Day
  Sex: Female

DRUGS (4)
  1. CELEXA [Suspect]
     Indication: ANXIETY
     Dosage: 40 MG QD TRANSPLACENTAL
     Route: 064
     Dates: start: 20040101, end: 20040201
  2. CELEXA [Suspect]
     Indication: DEPRESSION
     Dosage: 40 MG QD TRANSPLACENTAL
     Route: 064
     Dates: start: 20040101, end: 20040201
  3. PRECARE [Concomitant]
  4. ZITHROMAX [Concomitant]

REACTIONS (6)
  - CAESAREAN SECTION [None]
  - DRUG EXPOSURE DURING PREGNANCY [None]
  - FALLOT'S TETRALOGY [None]
  - LIMB MALFORMATION [None]
  - PLACENTA PRAEVIA [None]
  - PLACENTAL INSUFFICIENCY [None]
